FAERS Safety Report 15106649 (Version 1)
Quarter: 2018Q3

REPORT INFORMATION
  Report Type: Spontaneous
  Country: US (occurrence: US)
  Receive Date: 20180704
  Receipt Date: 20180704
  Transmission Date: 20181010
  Serious: No
  Sender: FDA-Public Use
  Company Number: US-SA-2018SA168410

PATIENT
  Age: 70 Year
  Sex: Male

DRUGS (1)
  1. TOUJEO [Suspect]
     Active Substance: INSULIN GLARGINE
     Indication: DIABETES MELLITUS
     Dosage: 35 U, QD
     Route: 048

REACTIONS (10)
  - Hypoglycaemia [Unknown]
  - Blood pressure fluctuation [Unknown]
  - Blood glucose increased [Unknown]
  - Dyspnoea [Unknown]
  - Fatigue [Unknown]
  - Incorrect dose administered [Unknown]
  - Sleep disorder [Unknown]
  - Dizziness [Unknown]
  - Confusional state [Unknown]
  - Disturbance in attention [Unknown]
